FAERS Safety Report 5909567-5 (Version None)
Quarter: 2008Q4

REPORT INFORMATION
  Report Type: 
  Country: None (occurrence: None)
  Receive Date: 20081002
  Receipt Date: 20080924
  Transmission Date: 20090506
  Serious: Yes (Death)
  Sender: FDA-Public Use
  Company Number: MSTR-NO-0809S-0073

PATIENT
  Age: 73 Year
  Sex: Male

DRUGS (1)
  1. METASTRON [Suspect]
     Indication: METASTATIC PAIN
     Dosage: I.V.
     Route: 042
     Dates: start: 20080605, end: 20080605

REACTIONS (1)
  - CONDITION AGGRAVATED [None]
